FAERS Safety Report 4278946-7 (Version None)
Quarter: 2004Q1

REPORT INFORMATION
  Report Type: 
  Country: None (occurrence: None)
  Receive Date: 20040122
  Receipt Date: 20040106
  Transmission Date: 20041129
  Serious: Yes (Life-Threatening, Hospitalization)
  Sender: FDA-Public Use
  Company Number: DSA_23835_2004

PATIENT
  Age: 50 Year
  Sex: Male

DRUGS (12)
  1. VASOTEC [Suspect]
     Dosage: 40 MG Q DAY PO
     Route: 048
     Dates: start: 19960101, end: 20010618
  2. PRAVASTATIN [Suspect]
     Dosage: 40 MG Q DAY PO
     Route: 048
     Dates: start: 20010201
  3. GATIFLOXACIN [Suspect]
     Dosage: 400 MG Q DAY PO
     Route: 048
     Dates: start: 20010215, end: 20010606
  4. ZESTRIL [Suspect]
     Dosage: 10 MG Q DAY
     Dates: start: 19960101, end: 20010608
  5. PLAVIX [Concomitant]
  6. NORVASC [Concomitant]
  7. GLUCOTROL [Concomitant]
  8. VITAMIN E [Concomitant]
  9. VITAMIN C [Concomitant]
  10. IMDUR [Concomitant]
  11. NAPROGYN [Concomitant]
  12. ULTRAM [Concomitant]

REACTIONS (13)
  - AGITATION [None]
  - ANGIONEUROTIC OEDEMA [None]
  - BLOOD GLUCOSE INCREASED [None]
  - BLOOD POTASSIUM INCREASED [None]
  - BLOOD SODIUM DECREASED [None]
  - DRUG SCREEN POSITIVE [None]
  - HAEMOGLOBIN DECREASED [None]
  - LYMPHOCYTE COUNT DECREASED [None]
  - MONOCYTE COUNT DECREASED [None]
  - NEUTROPHIL COUNT INCREASED [None]
  - RESPIRATORY DISTRESS [None]
  - SWOLLEN TONGUE [None]
  - WHITE BLOOD CELL COUNT INCREASED [None]
